FAERS Safety Report 9814733 (Version 1)
Quarter: 2014Q1

REPORT INFORMATION
  Report Type: Spontaneous
  Country: US (occurrence: US)
  Receive Date: 20140113
  Receipt Date: 20140113
  Transmission Date: 20141002
  Serious: Yes (Other)
  Sender: FDA-Public Use
  Company Number: US-SANOFI-AVENTIS-2013SA045650

PATIENT
  Age: 63 Year
  Sex: Female

DRUGS (2)
  1. TAXOTERE [Suspect]
     Route: 041
  2. CYTOXAN [Suspect]

REACTIONS (1)
  - Neutrophil count decreased [Unknown]
